FAERS Safety Report 6448028-4 (Version None)
Quarter: 2009Q4

REPORT INFORMATION
  Report Type: 
  Country: None (occurrence: None)
  Receive Date: 20091120
  Receipt Date: 20091111
  Transmission Date: 20100525
  Serious: Yes (Other)
  Sender: FDA-Public Use
  Company Number: US-ROCHE-668384

PATIENT
  Sex: Male
  Weight: 80.7 kg

DRUGS (1)
  1. CAPECITABINE [Suspect]
     Route: 048
     Dates: start: 20091030

REACTIONS (2)
  - MALIGNANT NEOPLASM PROGRESSION [None]
  - PAIN [None]
